FAERS Safety Report 4580923-3 (Version None)
Quarter: 2005Q1

REPORT INFORMATION
  Report Type: 
  Country: None (occurrence: None)
  Receive Date: 20050214
  Receipt Date: 20040625
  Transmission Date: 20050727
  Serious: No
  Sender: FDA-Public Use
  Company Number: US-GLAXOSMITHKLINE-A0516135A

PATIENT
  Age: 19 Year
  Sex: Female

DRUGS (3)
  1. LAMICTAL [Suspect]
     Indication: BIPOLAR DISORDER
     Dosage: 25MG PER DAY
     Route: 048
     Dates: start: 20040608, end: 20040623
  2. AMBIEN [Concomitant]
  3. ADDERALL 10 [Concomitant]

REACTIONS (8)
  - DYSMENORRHOEA [None]
  - ERYTHEMA [None]
  - FLUSHING [None]
  - FUNGAL INFECTION [None]
  - HYPOAESTHESIA [None]
  - MYALGIA [None]
  - RASH [None]
  - SWELLING [None]
